FAERS Safety Report 7225504-8 (Version None)
Quarter: 2011Q1

REPORT INFORMATION
  Report Type: 
  Country: None (occurrence: None)
  Receive Date: 20110113
  Receipt Date: 20110107
  Transmission Date: 20110831
  Serious: Yes (Hospitalization)
  Sender: FDA-Public Use
  Company Number: FR-MERCK-1101FRA00026

PATIENT
  Age: 32 Year
  Sex: Female

DRUGS (15)
  1. ONDANSETRON [Suspect]
     Route: 042
     Dates: start: 20101104, end: 20101105
  2. MESNA [Concomitant]
     Route: 042
     Dates: start: 20101104, end: 20101105
  3. SULFAMETHOXAZOLE AND TRIMETHOPRIM [Concomitant]
     Route: 048
  4. HYDROXYCHLOROQUINE SULFATE [Concomitant]
     Route: 048
  5. VALACYCLOVIR HYDROCHLORIDE [Concomitant]
     Route: 048
  6. ZOLPIDEM TARTRATE [Suspect]
     Route: 048
     Dates: end: 20101106
  7. MESNA [Concomitant]
     Route: 048
     Dates: start: 20101104, end: 20101105
  8. ROSUVASTATIN CALCIUM [Concomitant]
     Route: 048
  9. CYCLOPHOSPHAMIDE [Suspect]
     Route: 042
     Dates: start: 20101104, end: 20101104
  10. CARBOXYMETHYLCELLULOSE SODIUM [Concomitant]
     Route: 048
  11. POTASSIUM CHLORIDE [Concomitant]
     Route: 048
  12. STROMECTOL [Suspect]
     Route: 048
     Dates: start: 20101029, end: 20101030
  13. METHYLPREDNISOLONE SODIUM SUCCINATE [Suspect]
     Route: 042
     Dates: start: 20101028, end: 20101031
  14. CALCIUM CARBONATE AND CHOLECALCIFEROL [Concomitant]
     Route: 048
  15. ALPRAZOLAM [Concomitant]
     Route: 048

REACTIONS (1)
  - CYTOLYTIC HEPATITIS [None]
